FAERS Safety Report 7266103-1 (Version None)
Quarter: 2011Q1

REPORT INFORMATION
  Report Type: 
  Country: None (occurrence: None)
  Receive Date: 20110131
  Receipt Date: 20110125
  Transmission Date: 20110831
  Serious: Yes (Hospitalization, Other)
  Sender: FDA-Public Use
  Company Number: JP-BRISTOL-MYERS SQUIBB COMPANY-15396989

PATIENT
  Age: 40 Year
  Sex: Female
  Weight: 63 kg

DRUGS (3)
  1. PACLITAXEL [Suspect]
     Indication: BREAST CANCER
     Dosage: D8C1: 13SEP2010 D15C1: 01OCT D8C2:27OCT D15C2:05NOV D1C3: 15NOV2010, DICONT: 22NOV10.
     Route: 041
     Dates: start: 20100906, end: 20101115
  2. DECADRON [Concomitant]
     Indication: NAUSEA
     Dosage: TAB
     Route: 048
     Dates: start: 20101117, end: 20101117
  3. PARAPLATIN [Suspect]
     Indication: BREAST CANCER
     Dosage: D1C2: 13OCT2010(660MG) D1C3: 15NOV2010, DISCONT: 22NOV10.
     Route: 041
     Dates: start: 20100906

REACTIONS (4)
  - PYREXIA [None]
  - CELLULITIS [None]
  - ARTHRITIS [None]
  - ROTATOR CUFF SYNDROME [None]
